FAERS Safety Report 11534842 (Version 2)
Quarter: 2015Q3

REPORT INFORMATION
  Report Type: Spontaneous
  Country: JP (occurrence: JP)
  Receive Date: 20150922
  Receipt Date: 20150924
  Transmission Date: 20151125
  Serious: Yes (Death, Hospitalization)
  Sender: FDA-Public Use
  Company Number: JP-ROCHE-1631046

PATIENT
  Age: 60 Year
  Sex: Female
  Weight: 49 kg

DRUGS (14)
  1. FEBURIC [Concomitant]
     Active Substance: FEBUXOSTAT
     Indication: HYPERURICAEMIA
     Route: 048
  2. AZULFIDINE EN-TABS [Concomitant]
     Active Substance: SULFASALAZINE
     Route: 065
     Dates: start: 20150611, end: 20150811
  3. ATORVASTATIN [Concomitant]
     Active Substance: ATORVASTATIN
     Indication: DYSLIPIDAEMIA
     Route: 048
  4. TRAMAL [Concomitant]
     Active Substance: TRAMADOL
     Indication: RHEUMATOID ARTHRITIS
     Route: 048
     Dates: start: 20150529
  5. PREDONINE [Suspect]
     Active Substance: PREDNISOLONE\PREDNISOLONE ACETATE\PREDNISOLONE SODIUM SUCCINATE
     Indication: RHEUMATOID ARTHRITIS
     Route: 065
     Dates: start: 2003
  6. PREDONINE [Suspect]
     Active Substance: PREDNISOLONE\PREDNISOLONE ACETATE\PREDNISOLONE SODIUM SUCCINATE
     Indication: RHEUMATOID ARTHRITIS
     Route: 048
     Dates: start: 20150602, end: 20150610
  7. ACTEMRA [Suspect]
     Active Substance: TOCILIZUMAB
     Indication: RHEUMATOID ARTHRITIS
     Dosage: DOSAGE UNCERTAIN.
     Route: 042
     Dates: start: 20110714, end: 20140918
  8. ACTEMRA [Suspect]
     Active Substance: TOCILIZUMAB
     Indication: RHEUMATOID ARTHRITIS
     Route: 058
     Dates: start: 20150811, end: 20150811
  9. NAPA [Concomitant]
     Active Substance: ACETAMINOPHEN
     Indication: RHEUMATOID ARTHRITIS
     Route: 048
  10. LAC-B [Concomitant]
     Active Substance: BIFIDOBACTERIUM SPP.
     Route: 048
  11. ACTEMRA [Suspect]
     Active Substance: TOCILIZUMAB
     Indication: RHEUMATOID ARTHRITIS
  12. PREDONINE [Suspect]
     Active Substance: PREDNISOLONE\PREDNISOLONE ACETATE\PREDNISOLONE SODIUM SUCCINATE
     Route: 048
     Dates: start: 20150611
  13. CEFAZOLIN SODIUM. [Suspect]
     Active Substance: CEFAZOLIN SODIUM
     Indication: PRODUCT USED FOR UNKNOWN INDICATION
     Dosage: DOSAGE  UNCERTAIN.
     Route: 065
  14. PARIET [Concomitant]
     Active Substance: RABEPRAZOLE SODIUM
     Indication: GASTRIC ULCER
     Route: 048

REACTIONS (10)
  - Hydronephrosis [Recovering/Resolving]
  - Extradural abscess [Recovering/Resolving]
  - Hyperkeratosis [Unknown]
  - Pyelonephritis acute [Recovering/Resolving]
  - Staphylococcal sepsis [Recovering/Resolving]
  - Drug eruption [Unknown]
  - Liver abscess [Fatal]
  - Hepatic haemorrhage [Fatal]
  - Cholangitis [Recovering/Resolving]
  - Cholelithiasis [Unknown]

NARRATIVE: CASE EVENT DATE: 20140820
